FAERS Safety Report 6780718-6 (Version None)
Quarter: 2010Q2

REPORT INFORMATION
  Report Type: 
  Country: None (occurrence: None)
  Receive Date: 20100621
  Receipt Date: 20100611
  Transmission Date: 20101027
  Serious: No
  Sender: FDA-Public Use
  Company Number: 2009BI030939

PATIENT
  Age: 48 Year
  Sex: Female

DRUGS (2)
  1. TYSABRI [Suspect]
     Indication: MULTIPLE SCLEROSIS
     Route: 042
     Dates: start: 20070618, end: 20091223
  2. TYSABRI [Suspect]
     Route: 042
     Dates: start: 20100201

REACTIONS (4)
  - ARTHRITIS [None]
  - LOSS OF CONTROL OF LEGS [None]
  - MUSCULOSKELETAL PAIN [None]
  - PERONEAL NERVE PALSY [None]
